FAERS Safety Report 7861706-5 (Version None)
Quarter: 2011Q4

REPORT INFORMATION
  Report Type: 
  Country: None (occurrence: None)
  Receive Date: 20111027
  Receipt Date: 20111019
  Transmission Date: 20120403
  Serious: Yes (Hospitalization)
  Sender: FDA-Public Use
  Company Number: JP-MERCK-1110USA03345

PATIENT
  Age: 78 Year
  Sex: Male

DRUGS (5)
  1. SINGULAIR [Suspect]
     Indication: ASTHMA
     Route: 048
     Dates: end: 20110622
  2. DIOVAN [Concomitant]
     Indication: HYPERTENSION
     Route: 048
     Dates: end: 20110622
  3. CELESTAMINE TAB [Concomitant]
     Dosage: DIVIDED DOSE FREQUENCY UNKNOWN
     Route: 048
     Dates: end: 20110622
  4. OMEPRAZOLE [Concomitant]
     Indication: GASTRITIS PROPHYLAXIS
     Route: 048
     Dates: end: 20110622
  5. LOXONIN [Suspect]
     Indication: BACK PAIN
     Route: 048
     Dates: start: 20110606, end: 20110622

REACTIONS (4)
  - EOSINOPHILIC PNEUMONIA [None]
  - PLATELET COUNT DECREASED [None]
  - LYMPHADENOPATHY [None]
  - RENAL DISORDER [None]
